FAERS Safety Report 13302002 (Version 1)
Quarter: 2017Q1

REPORT INFORMATION
  Report Type: Spontaneous
  Country: AU (occurrence: AU)
  Receive Date: 20170307
  Receipt Date: 20170307
  Transmission Date: 20170428
  Serious: Yes (Hospitalization)
  Sender: FDA-Public Use
  Company Number: AU-PFIZER INC-2017041138

PATIENT
  Age: 74 Year
  Sex: Male

DRUGS (1)
  1. LIPITOR [Suspect]
     Active Substance: ATORVASTATIN CALCIUM
     Indication: CEREBROVASCULAR ACCIDENT
     Dosage: 40 MG, DAILY
     Dates: start: 2016, end: 20170130

REACTIONS (3)
  - Chromaturia [Recovered/Resolved]
  - Rash [Recovered/Resolved]
  - Faeces pale [Recovered/Resolved]

NARRATIVE: CASE EVENT DATE: 201701
